FAERS Safety Report 6010058-4 (Version None)
Quarter: 2008Q4

REPORT INFORMATION
  Report Type: 
  Country: None (occurrence: None)
  Receive Date: 20081218
  Receipt Date: 20081208
  Transmission Date: 20090506
  Serious: Yes (Other)
  Sender: FDA-Public Use
  Company Number: FR-BAXTER-2008BH003296

PATIENT
  Age: 34 Year
  Sex: Female

DRUGS (1)
  1. HOLOXAN BAXTER [Suspect]
     Indication: DRUG USE FOR UNKNOWN INDICATION
     Dosage: DOSE UNIT:UNKNOWN
     Route: 055
     Dates: start: 20080407, end: 20080407

REACTIONS (4)
  - ABDOMINAL PAIN [None]
  - ACCIDENTAL EXPOSURE [None]
  - HEADACHE [None]
  - NAUSEA [None]
